FAERS Safety Report 5988786-6 (Version None)
Quarter: 2008Q4

REPORT INFORMATION
  Report Type: 
  Country: None (occurrence: None)
  Receive Date: 20081208
  Receipt Date: 20081208
  Transmission Date: 20090506
  Serious: Yes (Hospitalization, Disabling)
  Sender: FDA-Public Use
  Company Number: None

PATIENT
  Sex: Male
  Weight: 79.8331 kg

DRUGS (1)
  1. REVLIMID [Suspect]
     Indication: LYMPHOMA
     Dosage: 15MG DAILY PO
     Route: 048
     Dates: start: 20080903, end: 20080923

REACTIONS (5)
  - CELLULITIS ORBITAL [None]
  - EYE INFECTION STAPHYLOCOCCAL [None]
  - EYE SWELLING [None]
  - NEUTROPENIA [None]
  - ORAL CANDIDIASIS [None]
